FAERS Safety Report 7244646-4 (Version None)
Quarter: 2011Q1

REPORT INFORMATION
  Report Type: 
  Country: None (occurrence: None)
  Receive Date: 20110125
  Receipt Date: 20101112
  Transmission Date: 20110831
  Serious: No
  Sender: FDA-Public Use
  Company Number: US-MYLANLABS-2010S1020998

PATIENT
  Age: 32 Year
  Sex: Female

DRUGS (3)
  1. M.V.I. [Concomitant]
     Route: 048
  2. LEVOTHYROXINE SODIUM [Suspect]
     Indication: HYPOTHYROIDISM
     Route: 048
     Dates: start: 20101111
  3. LIOTHYRONINE SODIUM [Suspect]
     Indication: HYPOTHYROIDISM
     Route: 048
     Dates: start: 20101111

REACTIONS (2)
  - FLATULENCE [None]
  - ABDOMINAL PAIN UPPER [None]
